FAERS Safety Report 5217960-1 (Version None)
Quarter: 2007Q1

REPORT INFORMATION
  Report Type: 
  Country: None (occurrence: None)
  Receive Date: 20070124
  Receipt Date: 20070104
  Transmission Date: 20070707
  Serious: Yes (Hospitalization)
  Sender: FDA-Public Use
  Company Number: PHHO2007DE00512

PATIENT
  Sex: Female
  Weight: 57 kg

DRUGS (3)
  1. ZOLEDRONATE [Suspect]
     Indication: BREAST CANCER
     Dosage: 4MG EVERY 3 MONTHS
     Route: 042
     Dates: start: 20061018
  2. CALCIMAGON-D3 [Concomitant]
     Dates: start: 20061018
  3. TAMOXIFEN CITRATE [Concomitant]
     Dates: start: 20061018

REACTIONS (5)
  - ARTHROPATHY [None]
  - ARTHROSCOPY [None]
  - CHONDROPATHY [None]
  - MENISCUS LESION [None]
  - OSTEONECROSIS [None]
